FAERS Safety Report 19295201 (Version 3)
Quarter: 2021Q4

REPORT INFORMATION
  Report Type: Other
  Country: CA (occurrence: CA)
  Receive Date: 20210524
  Receipt Date: 20211020
  Transmission Date: 20220303
  Serious: Yes (Hospitalization)
  Sender: FDA-Public Use
  Company Number: CA-ROCHE-2832960

PATIENT
  Age: 63 Year
  Sex: Male

DRUGS (20)
  1. RITUXAN [Suspect]
     Active Substance: RITUXIMAB
     Indication: Interstitial lung disease
     Route: 041
     Dates: start: 20190829
  2. ALENDRONATE [Concomitant]
     Active Substance: ALENDRONATE SODIUM
  3. AMLODIPINE [Concomitant]
     Active Substance: AMLODIPINE BESYLATE
  4. AMOXICILLIN [Concomitant]
     Active Substance: AMOXICILLIN
  5. ATROVENT [Concomitant]
     Active Substance: IPRATROPIUM BROMIDE
  6. BENADRYL [Concomitant]
     Active Substance: DIPHENHYDRAMINE HYDROCHLORIDE
     Indication: Premedication
     Route: 048
     Dates: start: 20190829
  7. CALCIUM [Concomitant]
     Active Substance: CALCIUM
  8. ELIQUIS [Concomitant]
     Active Substance: APIXABAN
  9. GABAPENTIN [Concomitant]
     Active Substance: GABAPENTIN
  10. HYDROCHLOROTHIAZIDE [Concomitant]
     Active Substance: HYDROCHLOROTHIAZIDE
  11. HYDROMORPHONE [Concomitant]
     Active Substance: HYDROMORPHONE
  12. IRON [Concomitant]
     Active Substance: IRON
     Indication: Formication
  13. PANTOPRAZOLE [Concomitant]
     Active Substance: PANTOPRAZOLE
  14. PREDNISONE [Concomitant]
     Active Substance: PREDNISONE
  15. RAMIPRIL [Concomitant]
     Active Substance: RAMIPRIL
  16. RANITIDINE [Concomitant]
     Active Substance: RANITIDINE
  17. SOLU-MEDROL [Concomitant]
     Active Substance: METHYLPREDNISOLONE SODIUM SUCCINATE
     Indication: Premedication
     Route: 042
     Dates: start: 20190829
  18. SULFATRIM [Concomitant]
     Active Substance: SULFAMETHOXAZOLE\TRIMETHOPRIM
  19. TYLENOL [Concomitant]
     Active Substance: ACETAMINOPHEN
     Indication: Premedication
     Route: 048
     Dates: start: 20190829
  20. TYLENOL WITH CODEINE [Concomitant]
     Active Substance: ACETAMINOPHEN\CODEINE PHOSPHATE

REACTIONS (16)
  - Spinal disorder [Unknown]
  - Heart rate increased [Unknown]
  - Off label use [Unknown]
  - Blood pressure diastolic abnormal [Unknown]
  - Blood pressure systolic increased [Unknown]
  - Tooth disorder [Unknown]
  - Oxygen saturation decreased [Unknown]
  - Blood pressure fluctuation [Unknown]
  - Headache [Recovered/Resolved]
  - Abdominal pain upper [Unknown]
  - Blood pressure increased [Unknown]
  - Headache [Not Recovered/Not Resolved]
  - Cough [Unknown]
  - Abdominal pain [Unknown]
  - Dyspnoea [Unknown]
  - Formication [Not Recovered/Not Resolved]

NARRATIVE: CASE EVENT DATE: 20190829
